FAERS Safety Report 8610956-9 (Version None)
Quarter: 2012Q3

REPORT INFORMATION
  Report Type: 
  Country: None (occurrence: None)
  Receive Date: 20120822
  Receipt Date: 20110907
  Transmission Date: 20120928
  Serious: No
  Sender: FDA-Public Use
  Company Number: US-PFIZER INC-2011219466

PATIENT
  Age: 44 Year
  Sex: Male

DRUGS (3)
  1. SENOKOT [Concomitant]
     Dosage: 8.6 MG/50 MG
  2. GAS-X [Concomitant]
  3. MORPHINE SULFATE [Suspect]

REACTIONS (1)
  - URINE ANALYSIS ABNORMAL [None]
